FAERS Safety Report 23111943 (Version 3)
Quarter: 2024Q1

REPORT INFORMATION
  Report Type: Spontaneous
  Country: US (occurrence: US)
  Receive Date: 20231026
  Receipt Date: 20240123
  Transmission Date: 20240409
  Serious: Yes (Hospitalization, Other)
  Sender: FDA-Public Use
  Company Number: US-PFIZER INC-2018450007

PATIENT
  Age: 76 Year
  Sex: Male
  Weight: 81.633 kg

DRUGS (3)
  1. XELJANZ XR [Suspect]
     Active Substance: TOFACITINIB CITRATE
     Indication: Rheumatoid arthritis
     Dosage: 11 MG ONCE A DAY
  2. OMNICEF [CEFOTAXIME SODIUM] [Concomitant]
     Dosage: UNK
  3. MINOCYCLINE [Concomitant]
     Active Substance: MINOCYCLINE HYDROCHLORIDE
     Dosage: UNK

REACTIONS (5)
  - Skin cancer [Recovered/Resolved]
  - Deafness [Recovered/Resolved]
  - Ear injury [Recovered/Resolved]
  - Fatigue [Recovered/Resolved]
  - Ear neoplasm malignant [Unknown]
